FAERS Safety Report 7104393-6 (Version None)
Quarter: 2010Q4

REPORT INFORMATION
  Report Type: 
  Country: None (occurrence: None)
  Receive Date: 20101115
  Receipt Date: 20100218
  Transmission Date: 20110411
  Serious: Yes (Hospitalization, Disabling)
  Sender: FDA-Public Use
  Company Number: GB-AMGEN-UK350182

PATIENT

DRUGS (9)
  1. PANITUMUMAB [Suspect]
     Indication: COLORECTAL CANCER
     Dosage: 6 MG/KG, QCYCLE
     Route: 042
     Dates: start: 20090514
  2. OXALIPLATIN [Suspect]
     Dosage: UNK UNK, QCYCLE
     Route: 065
     Dates: start: 20090514
  3. FLUOROURACIL [Concomitant]
     Dosage: UNK UNK, QCYCLE
     Route: 065
     Dates: start: 20090514
  4. FOLINIC ACID [Concomitant]
     Dosage: UNK UNK, QCYCLE
     Route: 065
     Dates: start: 20090514
  5. CODEINE [Concomitant]
     Dosage: 30 MG, UNK
     Route: 048
     Dates: start: 20090525
  6. METOCLOPRAMIDE HYDROCHLORIDE [Concomitant]
     Dosage: 10 MG, UNK
     Route: 048
     Dates: start: 20090524, end: 20090530
  7. ENOXAPARIN SODIUM [Concomitant]
  8. PARACETAMOL [Concomitant]
     Dosage: UNK UNK, Q6H
     Route: 042
     Dates: start: 20090521
  9. METRONIDAZOLE [Concomitant]
     Dosage: 500 MG, QD
     Route: 042
     Dates: start: 20090521

REACTIONS (2)
  - INTESTINAL PERFORATION [None]
  - NEUTROPENIA [None]
